FAERS Safety Report 9522678 (Version 1)
Quarter: 2013Q3

REPORT INFORMATION
  Report Type: Spontaneous
  Country: US (occurrence: US)
  Receive Date: 20130913
  Receipt Date: 20130913
  Transmission Date: 20140515
  Serious: No
  Sender: FDA-Public Use
  Company Number: US-009507513-1309USA004380

PATIENT
  Sex: Female

DRUGS (1)
  1. NEXPLANON [Suspect]
     Indication: CONTRACEPTION
     Dosage: UNK
     Route: 059
     Dates: start: 201306, end: 20130706

REACTIONS (3)
  - Hypoaesthesia [Recovered/Resolved]
  - Implant site erythema [Recovered/Resolved]
  - Implant site irritation [Recovered/Resolved]
